FAERS Safety Report 19088286 (Version 1)
Quarter: 2021Q2

REPORT INFORMATION
  Report Type: Spontaneous
  Country: GB (occurrence: GB)
  Receive Date: 20210402
  Receipt Date: 20210402
  Transmission Date: 20210717
  Serious: Yes (Other)
  Sender: FDA-Public Use
  Company Number: GB-MYLANLABS-2021M1019710

PATIENT
  Age: 84 Year
  Sex: Female
  Weight: 71 kg

DRUGS (10)
  1. LANSOPRAZOLE. [Suspect]
     Active Substance: LANSOPRAZOLE
     Indication: PRODUCT USED FOR UNKNOWN INDICATION
     Dosage: 30 MILLIGRAM, QD (TO PROTECT YOUR STOMACH)
     Route: 048
     Dates: start: 20210323
  2. PARACETAMOL [Concomitant]
     Active Substance: ACETAMINOPHEN
     Dosage: 2 DOSAGE FORM, QD
     Route: 048
     Dates: start: 20210322
  3. AMITRIPTYLINE HYDROCHLORIDE. [Concomitant]
     Active Substance: AMITRIPTYLINE HYDROCHLORIDE
     Dosage: 1 DOSAGE FORM, QD (AT NIGHT)
     Route: 048
     Dates: start: 20210322
  4. ATORVASTATIN [Concomitant]
     Active Substance: ATORVASTATIN
     Dosage: 1 DOSAGE FORM, QD (AT NIGHT)
     Route: 048
     Dates: start: 20210322
  5. SENNA                              /00142201/ [Concomitant]
     Active Substance: SENNA LEAF
     Dosage: 2 DOSAGE FORM, QD (AT NIGHT)
     Route: 048
     Dates: start: 20210322
  6. BIMATOPROST. [Concomitant]
     Active Substance: BIMATOPROST
     Dosage: 2 GTT DROPS, QD (INTO BOTH EYES AT NIGHT)
     Dates: start: 20150611
  7. RAMIPRIL. [Concomitant]
     Active Substance: RAMIPRIL
     Dosage: 1 DOSAGE FORM, QD (EVERY MORNING)
     Route: 048
     Dates: start: 20210322
  8. APIXABAN [Concomitant]
     Active Substance: APIXABAN
     Dosage: 1 DOSAGE FORM, QD
     Route: 048
     Dates: start: 20210322
  9. FELODIPINE. [Concomitant]
     Active Substance: FELODIPINE
     Dosage: 1 DOSAGE FORM, QD (EVERY MORNING (TOTAL DAILY DOSE)
     Route: 048
     Dates: start: 20210322
  10. TIMOLOL. [Concomitant]
     Active Substance: TIMOLOL
     Dosage: 2 GTT DROPS, QD (INTO BOTH EYES)
     Dates: start: 20150323

REACTIONS (1)
  - Joint swelling [Recovered/Resolved]

NARRATIVE: CASE EVENT DATE: 20210326
